FAERS Safety Report 21290160 (Version 3)
Quarter: 2023Q1

REPORT INFORMATION
  Report Type: Spontaneous
  Country: CN (occurrence: CN)
  Receive Date: 20220902
  Receipt Date: 20230328
  Transmission Date: 20230418
  Serious: Yes (Life-Threatening)
  Sender: FDA-Public Use
  Company Number: CN-BAYER-2022A122601

PATIENT
  Age: 73 Year
  Sex: Female
  Weight: 36.4 kg

DRUGS (5)
  1. GLUCOBAY [Interacting]
     Active Substance: ACARBOSE
     Indication: Type 2 diabetes mellitus
     Dosage: 100 MG, TID
     Route: 048
     Dates: start: 20220824, end: 20220827
  2. SAXAGLIPTIN [Interacting]
     Active Substance: SAXAGLIPTIN
     Indication: Type 2 diabetes mellitus
     Dosage: 5 MG, QD
     Route: 048
     Dates: start: 20220824, end: 20220827
  3. INSULIN GLARGINE [Interacting]
     Active Substance: INSULIN GLARGINE
     Indication: Type 2 diabetes mellitus
     Dosage: 32 U, QD
     Route: 058
     Dates: start: 20220824, end: 20220827
  4. METFORMIN HYDROCHLORIDE [Interacting]
     Active Substance: METFORMIN HYDROCHLORIDE
     Indication: Type 2 diabetes mellitus
     Dosage: 0.25 G, TID
     Route: 048
     Dates: start: 20220824, end: 20220827
  5. ASPIRIN [Concomitant]
     Active Substance: ASPIRIN
     Indication: Cerebrovascular accident prophylaxis
     Dosage: 100 MG, QD
     Route: 048
     Dates: start: 20220824, end: 20220827

REACTIONS (3)
  - Hypoglycaemia [Recovering/Resolving]
  - Depressed level of consciousness [None]
  - Unresponsive to stimuli [None]

NARRATIVE: CASE EVENT DATE: 20220827
